FAERS Safety Report 5479085-X (Version None)
Quarter: 2007Q4

REPORT INFORMATION
  Report Type: 
  Country: None (occurrence: None)
  Receive Date: 20071006
  Receipt Date: 20070928
  Transmission Date: 20080405
  Serious: Yes (Other)
  Sender: FDA-Public Use
  Company Number: DE-PFIZER INC-2007081538

PATIENT
  Sex: Female
  Weight: 68 kg

DRUGS (2)
  1. ZELDOX (CAPSULES) [Suspect]
     Indication: SCHIZOAFFECTIVE DISORDER
     Dosage: DAILY DOSE:160MG-TEXT:TDD:160MG
     Route: 048
  2. CITALOPRAM HYDROBROMIDE [Concomitant]
     Dosage: DAILY DOSE:10MG
     Route: 048

REACTIONS (1)
  - OROPHARYNGEAL SPASM [None]
